FAERS Safety Report 7549158-6 (Version None)
Quarter: 2011Q2

REPORT INFORMATION
  Report Type: 
  Country: None (occurrence: None)
  Receive Date: 20110615
  Receipt Date: 20110602
  Transmission Date: 20111010
  Serious: Yes (Other)
  Sender: FDA-Public Use
  Company Number: PHFR2010IE03301

PATIENT
  Sex: Female
  Weight: 73 kg

DRUGS (2)
  1. CLOZAPINE [Suspect]
     Indication: SCHIZOPHRENIA
     Route: 048
     Dates: start: 20090202
  2. CLOZAPINE [Suspect]
     Dosage: 225 MG DAILY
     Route: 065
     Dates: start: 20090301

REACTIONS (1)
  - STAPHYLOCOCCAL INFECTION [None]
